FAERS Safety Report 12603367 (Version 1)
Quarter: 2016Q3

REPORT INFORMATION
  Report Type: Spontaneous
  Country: US (occurrence: US)
  Receive Date: 20160728
  Receipt Date: 20160728
  Transmission Date: 20161109
  Serious: Yes (Hospitalization, Other)
  Sender: FDA-Public Use
  Company Number: US-CELGENEUS-USA-2016076574

PATIENT
  Sex: Male
  Weight: 69.92 kg

DRUGS (4)
  1. THALOMID [Suspect]
     Active Substance: THALIDOMIDE
     Indication: ARTERIOVENOUS MALFORMATION
  2. THALOMID [Suspect]
     Active Substance: THALIDOMIDE
     Indication: PORTAL VENOUS SYSTEM ANOMALY
     Dosage: 100 MILLIGRAM
     Route: 048
     Dates: start: 201410
  3. THALOMID [Suspect]
     Active Substance: THALIDOMIDE
     Indication: IRON DEFICIENCY ANAEMIA
  4. THALOMID [Suspect]
     Active Substance: THALIDOMIDE
     Indication: VITAMIN B COMPLEX DEFICIENCY

REACTIONS (3)
  - Pneumonia [Unknown]
  - Hypertension [Unknown]
  - Device related infection [Unknown]
